FAERS Safety Report 11321966 (Version 1)
Quarter: 2015Q3

REPORT INFORMATION
  Report Type: Spontaneous
  Country: JP (occurrence: JP)
  Receive Date: 20150729
  Receipt Date: 20150729
  Transmission Date: 20151125
  Serious: Yes (Other)
  Sender: FDA-Public Use
  Company Number: JP-EISAI MEDICAL RESEARCH-EC-2015-008819

PATIENT
  Age: 79 Year
  Sex: Male

DRUGS (4)
  1. ARICEPT [Suspect]
     Active Substance: DONEPEZIL HYDROCHLORIDE
     Route: 048
     Dates: start: 201408
  2. ARICEPT [Suspect]
     Active Substance: DONEPEZIL HYDROCHLORIDE
     Route: 048
     Dates: start: 201405, end: 201408
  3. ARICEPT [Suspect]
     Active Substance: DONEPEZIL HYDROCHLORIDE
     Indication: DEMENTIA ALZHEIMER^S TYPE
     Route: 048
     Dates: start: 2007, end: 201405
  4. ARICEPT [Suspect]
     Active Substance: DONEPEZIL HYDROCHLORIDE
     Dosage: QUARTER OF ARICEPT 5 MG TABLET
     Route: 048

REACTIONS (14)
  - Posture abnormal [Recovering/Resolving]
  - Memory impairment [Recovering/Resolving]
  - Jealous delusion [Recovering/Resolving]
  - Gait disturbance [Recovering/Resolving]
  - Poverty of speech [Recovering/Resolving]
  - Delirium [Recovering/Resolving]
  - Dizziness [Recovering/Resolving]
  - Abnormal behaviour [Recovering/Resolving]
  - Sleep talking [Recovering/Resolving]
  - Memory impairment [Recovering/Resolving]
  - Deafness [Recovering/Resolving]
  - Salivary hypersecretion [Recovering/Resolving]
  - Restlessness [Recovering/Resolving]
  - Hallucination [Recovering/Resolving]

NARRATIVE: CASE EVENT DATE: 2014
